FAERS Safety Report 16483419 (Version 2)
Quarter: 2019Q3

REPORT INFORMATION
  Report Type: Spontaneous
  Country: JP (occurrence: JP)
  Receive Date: 20190627
  Receipt Date: 20190705
  Transmission Date: 20191004
  Serious: No
  Sender: FDA-Public Use
  Company Number: JP-JNJFOC-20190625872

PATIENT

DRUGS (2)
  1. DUROTEP [Suspect]
     Active Substance: FENTANYL
     Indication: CANCER PAIN
     Dosage: 50 MCG/HR
     Route: 062
  2. DUROTEP [Suspect]
     Active Substance: FENTANYL
     Dosage: 25 MCG/HR
     Route: 062

REACTIONS (4)
  - Therapeutic product effect increased [Unknown]
  - Medication error [Unknown]
  - Logorrhoea [Recovered/Resolved]
  - Euphoric mood [Recovered/Resolved]
